FAERS Safety Report 20378965 (Version 2)
Quarter: 2023Q2

REPORT INFORMATION
  Report Type: Spontaneous
  Country: BR (occurrence: BR)
  Receive Date: 20220126
  Receipt Date: 20230417
  Transmission Date: 20230721
  Serious: Yes (Other)
  Sender: FDA-Public Use
  Company Number: BR-PFIZER INC-202101766172

PATIENT
  Age: 77 Year
  Sex: Female

DRUGS (2)
  1. VYNDAQEL [Suspect]
     Active Substance: TAFAMIDIS MEGLUMINE
     Dosage: 80 MG, DAILY
     Dates: start: 2019
  2. VYNDAQEL [Suspect]
     Active Substance: TAFAMIDIS MEGLUMINE
     Dosage: 20 MG, 1X/DAY

REACTIONS (6)
  - Choking [Unknown]
  - Diarrhoea [Not Recovered/Not Resolved]
  - Hypokinesia [Unknown]
  - Walking disability [Unknown]
  - Fatigue [Unknown]
  - Dyspnoea [Unknown]
